FAERS Safety Report 8789866 (Version 3)
Quarter: 2012Q4

REPORT INFORMATION
  Report Type: Report from Study
  Country: US (occurrence: US)
  Receive Date: 20120917
  Receipt Date: 20121026
  Transmission Date: 20130627
  Serious: Yes (Hospitalization)
  Sender: FDA-Public Use
  Company Number: US-NOVOPROD-357955

PATIENT
  Age: 66 Year
  Sex: Male
  Weight: 149.48 kg

DRUGS (2)
  1. LIRAGLUTIDE FLEXPEN [Suspect]
     Indication: TYPE 2 DIABETES MELLITUS
     Dosage: 1.8 mg, qd
     Route: 058
     Dates: start: 20111108, end: 20120801
  2. LIRAGLUTIDE FLEXPEN [Suspect]
     Dosage: 1.8 mg, qd
     Route: 058
     Dates: start: 20120808

REACTIONS (1)
  - Cholelithiasis [Recovered/Resolved]
